FAERS Safety Report 22594956 (Version 1)
Quarter: 2023Q2

REPORT INFORMATION
  Report Type: Spontaneous
  Country: US (occurrence: None)
  Receive Date: 20230612
  Receipt Date: 20230612
  Transmission Date: 20230721
  Serious: No
  Sender: FDA-Public Use
  Company Number: None

PATIENT
  Age: 33 Year
  Sex: Female
  Weight: 92.25 kg

DRUGS (2)
  1. CLINDAMYCIN HYDROCHLORIDE [Suspect]
     Active Substance: CLINDAMYCIN HYDROCHLORIDE
     Indication: Antibiotic prophylaxis
     Dosage: OTHER QUANTITY : 28 CAPSULE(S);?FREQUENCY : EVERY 6 HOURS;?
  2. CLINDAMYCIN HYDROCHLORIDE [Suspect]
     Active Substance: CLINDAMYCIN HYDROCHLORIDE
     Indication: Tooth extraction

REACTIONS (3)
  - Fatigue [None]
  - Fatigue [None]
  - Product use complaint [None]

NARRATIVE: CASE EVENT DATE: 20230611
